FAERS Safety Report 21917283 (Version 1)
Quarter: 2023Q1

REPORT INFORMATION
  Report Type: Spontaneous
  Country: US (occurrence: US)
  Receive Date: 20230126
  Receipt Date: 20230126
  Transmission Date: 20230417
  Serious: No
  Sender: FDA-Public Use
  Company Number: US-JNJFOC-20230133176

PATIENT
  Age: 42 Year
  Sex: Male
  Weight: 79.450 kg

DRUGS (1)
  1. CONCERTA [Suspect]
     Active Substance: METHYLPHENIDATE HYDROCHLORIDE
     Indication: Attention deficit hyperactivity disorder
     Dosage: ONCE EVERY MORNING WITH BREAKFAST
     Route: 048
     Dates: start: 2018

REACTIONS (6)
  - Product dose omission issue [Unknown]
  - Quality of life decreased [Unknown]
  - Hyperhidrosis [Unknown]
  - Disturbance in attention [Unknown]
  - General physical health deterioration [Unknown]
  - Sleep disorder [Unknown]

NARRATIVE: CASE EVENT DATE: 20221201
